FAERS Safety Report 7297739-X (Version None)
Quarter: 2011Q1

REPORT INFORMATION
  Report Type: 
  Country: None (occurrence: None)
  Receive Date: 20110214
  Receipt Date: 20110214
  Transmission Date: 20110831
  Serious: Yes (Disabling)
  Sender: FDA-Public Use
  Company Number: None

PATIENT
  Age: 58 Year
  Sex: Female
  Weight: 58.9676 kg

DRUGS (1)
  1. FOSAMAX [Suspect]
     Indication: OSTEOPENIA
     Dosage: 35 MG ONCE WEEKLY PO
     Route: 048
     Dates: start: 20091020, end: 20110206

REACTIONS (5)
  - DENTAL CARIES [None]
  - DEPRESSION [None]
  - TOOTHACHE [None]
  - TOOTH DISORDER [None]
  - TOOTH FRACTURE [None]
